FAERS Safety Report 7692700-5 (Version None)
Quarter: 2011Q3

REPORT INFORMATION
  Report Type: 
  Country: None (occurrence: None)
  Receive Date: 20110815
  Receipt Date: 20110729
  Transmission Date: 20111222
  Serious: Yes (Disabling)
  Sender: FDA-Public Use
  Company Number: 2011MA011329

PATIENT
  Age: 54 Year
  Sex: Male

DRUGS (9)
  1. FURIX (FUROSEMIDE) [Suspect]
  2. MAGNYL (NO PREF. NAME) [Suspect]
  3. METFORMIN HYDROCHLORIDE [Suspect]
  4. KALEROID (POTASSIUM CHLORIDE) [Suspect]
  5. ONGLYZA [Suspect]
     Indication: TYPE 2 DIABETES MELLITUS
     Dosage: 5 MG, PO
     Route: 048
     Dates: start: 20101110, end: 20101204
  6. INSULATARD NPH HUMAN [Suspect]
  7. CRESTOR [Suspect]
  8. CORODIL (ENALAPRIL) [Suspect]
  9. DIGOXIN [Suspect]

REACTIONS (3)
  - HEADACHE [None]
  - DISCOMFORT [None]
  - WEIGHT INCREASED [None]
